FAERS Safety Report 19905506 (Version 1)
Quarter: 2021Q4

REPORT INFORMATION
  Report Type: Spontaneous
  Country: JP (occurrence: JP)
  Receive Date: 20211001
  Receipt Date: 20211001
  Transmission Date: 20220303
  Serious: Yes (Other)
  Sender: FDA-Public Use
  Company Number: JP-PFIZER INC-202101259506

PATIENT
  Age: 7 Year
  Sex: Male

DRUGS (8)
  1. METHOTREXATE SODIUM [Interacting]
     Active Substance: METHOTREXATE SODIUM
     Indication: Acute lymphocytic leukaemia
     Dosage: 3 G/M2 TWICE
  2. METHOTREXATE SODIUM [Interacting]
     Active Substance: METHOTREXATE SODIUM
     Dosage: TOTAL DOSE 6000 MG/M2
  3. METHOTREXATE SODIUM [Interacting]
     Active Substance: METHOTREXATE SODIUM
     Dosage: 150 MG/M2
     Route: 042
  4. SULFAMETHOXAZOLE\TRIMETHOPRIM [Interacting]
     Active Substance: SULFAMETHOXAZOLE\TRIMETHOPRIM
     Indication: Infection prophylaxis
  5. ACETAZOLAMIDE [Concomitant]
     Active Substance: ACETAZOLAMIDE
     Indication: Prophylaxis
     Dosage: AT A RATE OF MORE THAN 2500 ML/M2/24 H
  6. LEUCOVORIN [Concomitant]
     Active Substance: LEUCOVORIN
     Dosage: 15 MG/M2 EVERY 6 H
  7. CYCLOPHOSPHAMIDE [Concomitant]
     Active Substance: CYCLOPHOSPHAMIDE
     Indication: Acute lymphocytic leukaemia
     Dosage: TOTAL DOSE 5700 MG/M2
  8. MERCAPTOPURINE [Concomitant]
     Active Substance: MERCAPTOPURINE
     Indication: Acute lymphocytic leukaemia
     Dosage: 50 MG/M2
     Route: 048

REACTIONS (4)
  - Drug interaction [Recovering/Resolving]
  - Acute kidney injury [Recovering/Resolving]
  - Drug clearance decreased [Recovering/Resolving]
  - Toxicity to various agents [Recovering/Resolving]
